FAERS Safety Report 23683187 (Version 1)
Quarter: 2024Q1

REPORT INFORMATION
  Report Type: Spontaneous
  Country: NL (occurrence: NL)
  Receive Date: 20240328
  Receipt Date: 20240328
  Transmission Date: 20240409
  Serious: Yes (Other)
  Sender: FDA-Public Use
  Company Number: NL-FreseniusKabi-FK202405031

PATIENT

DRUGS (2)
  1. CARBOPLATIN [Suspect]
     Active Substance: CARBOPLATIN
     Indication: Product used for unknown indication
     Dosage: CARBOPLATIN 60 ML VIAL?ROUTE OF ADMIN: UNKNOWN
  2. CARBOPLATIN [Suspect]
     Active Substance: CARBOPLATIN
     Dosage: CARBOPLATIN 15 ML VIAL?ROUTE OF ADMIN: UNKNOWN

REACTIONS (2)
  - Toxic skin eruption [Unknown]
  - Pain [Unknown]
